FAERS Safety Report 7957916-9 (Version None)
Quarter: 2011Q4

REPORT INFORMATION
  Report Type: 
  Country: None (occurrence: None)
  Receive Date: 20111205
  Receipt Date: 20111128
  Transmission Date: 20120403
  Serious: Yes (Other)
  Sender: FDA-Public Use
  Company Number: US-GENZYME-THYM-1001359

PATIENT
  Sex: Female
  Weight: 80.544 kg

DRUGS (11)
  1. TACROLIMUS [Concomitant]
     Indication: IMMUNOSUPPRESSION
     Dosage: UNK
     Route: 065
  2. INSULIN [Concomitant]
     Dosage: 0.1 U/KG, QD
     Route: 065
  3. INSULIN [Concomitant]
     Indication: TYPE 2 DIABETES MELLITUS
     Dosage: 0.45 U/KG, QD
     Route: 058
  4. METHYLPREDNISOLONE [Concomitant]
     Indication: PRODUCT USED FOR UNKNOWN INDICATION
     Dosage: 2 MG/KG, UNK
     Route: 065
  5. THYMOGLOBULIN [Suspect]
     Indication: PROPHYLAXIS AGAINST TRANSPLANT REJECTION
     Dosage: 0.5 MG/KG, QD
     Route: 042
     Dates: start: 20091115, end: 20091115
  6. THYMOGLOBULIN [Suspect]
     Dosage: 1 MG/KG, QD
     Route: 042
     Dates: start: 20091115, end: 20091115
  7. BASILIXIMAB [Concomitant]
     Indication: IMMUNOSUPPRESSION
     Dosage: 20 MG, UNK
     Route: 065
  8. ETANERCEPT [Concomitant]
     Indication: IMMUNOSUPPRESSION
     Route: 065
  9. THYMOGLOBULIN [Suspect]
     Dosage: 1.5 MG/KG, UNK
     Route: 042
     Dates: start: 20091116, end: 20091116
  10. INSULIN GLARGINE [Concomitant]
     Indication: TYPE 2 DIABETES MELLITUS
     Dosage: UNK
     Route: 058
  11. SIROLIMUS [Concomitant]
     Indication: IMMUNOSUPPRESSION
     Route: 065

REACTIONS (2)
  - HYPERSENSITIVITY [None]
  - SERUM SICKNESS [None]
